FAERS Safety Report 6105848-3 (Version None)
Quarter: 2009Q1

REPORT INFORMATION
  Report Type: 
  Country: None (occurrence: None)
  Receive Date: 20090306
  Receipt Date: 20090223
  Transmission Date: 20090719
  Serious: Yes (Hospitalization)
  Sender: FDA-Public Use
  Company Number: NL-PFIZER INC-2009159223

PATIENT

DRUGS (12)
  1. EXEMESTANE [Suspect]
     Indication: BREAST CANCER
     Dosage: 25 MG, 1X/DAY
     Route: 048
     Dates: start: 20041203
  2. PROMOCARD [Concomitant]
     Dosage: UNK
     Route: 048
     Dates: start: 20050101, end: 20081202
  3. COVERSYL [Concomitant]
     Dosage: UNK
     Dates: start: 20050101
  4. FUROSEMIDE [Concomitant]
     Dosage: UNK
     Route: 048
     Dates: start: 20050101, end: 20081202
  5. TILDIEM [Concomitant]
     Dosage: UNK
     Route: 048
     Dates: start: 20040101
  6. LIPITOR [Concomitant]
     Dosage: UNK
     Dates: start: 20040101
  7. ASCAL [Concomitant]
     Dosage: UNK
     Route: 048
     Dates: start: 20050101, end: 20081202
  8. NEXIUM [Concomitant]
     Dosage: UNK
     Route: 048
     Dates: start: 20050101
  9. DIAZEPAM [Concomitant]
     Route: 048
  10. DIPIPERON [Concomitant]
     Route: 048
  11. CYMBALTA [Concomitant]
     Route: 048
  12. MIRTAZAPINE [Concomitant]
     Route: 048

REACTIONS (2)
  - DEEP VEIN THROMBOSIS [None]
  - PULMONARY EMBOLISM [None]
